FAERS Safety Report 9009200 (Version 1)
Quarter: 2013Q1

REPORT INFORMATION
  Report Type: Spontaneous
  Country: ES (occurrence: ES)
  Receive Date: 20130111
  Receipt Date: 20130111
  Transmission Date: 20140127
  Serious: Yes (Other)
  Sender: FDA-Public Use
  Company Number: ES-GILEAD-2013-0067622

PATIENT
  Sex: 0

DRUGS (3)
  1. VIREAD [Suspect]
     Indication: HIV INFECTION
     Dosage: 300 MG, UNK
  2. DIDANOSINE [Suspect]
     Indication: HIV INFECTION
     Dosage: UNK
  3. EFAVIRENZ [Suspect]
     Indication: HIV INFECTION
     Dosage: 600 MG, UNK

REACTIONS (2)
  - Genotype drug resistance test positive [Unknown]
  - Virologic failure [Unknown]
